FAERS Safety Report 25879489 (Version 1)
Quarter: 2025Q4

REPORT INFORMATION
  Report Type: Report from Study
  Country: TR (occurrence: TR)
  Receive Date: 20251003
  Receipt Date: 20251003
  Transmission Date: 20260117
  Serious: Yes (Hospitalization)
  Sender: ABBVIE
  Company Number: TR-ABBVIE-6486390

PATIENT
  Age: 70 Year
  Sex: Male

DRUGS (3)
  1. CARBIDOPA\LEVODOPA [Suspect]
     Active Substance: CARBIDOPA\LEVODOPA
     Indication: Parkinson^s disease
     Dosage: MORNING DOSE (ML): 11.00 CONTINUOUS DOSE (ML): 3.00 EXTRA DOSE (ML): 1.50
     Route: 050
     Dates: start: 20250924
  2. CARBIDOPA\LEVODOPA [Suspect]
     Active Substance: CARBIDOPA\LEVODOPA
  3. Amantadine - (PK MERZ) [Concomitant]
     Indication: Parkinson^s disease
     Dosage: 200 MILLIGRAM
     Route: 048
     Dates: start: 2015

REACTIONS (2)
  - Flatulence [Recovering/Resolving]
  - Abdominal pain [Recovering/Resolving]

NARRATIVE: CASE EVENT DATE: 20250101
